FAERS Safety Report 6537278-4 (Version None)
Quarter: 2010Q1

REPORT INFORMATION
  Report Type: 
  Country: None (occurrence: None)
  Receive Date: 20100110
  Receipt Date: 20091222
  Transmission Date: 20100710
  Serious: Yes (Death)
  Sender: FDA-Public Use
  Company Number: B0623318A

PATIENT
  Sex: 0

DRUGS (5)
  1. RETROVIR [Suspect]
     Indication: ANTIVIRAL PROPHYLAXIS
     Dosage: 12 MG, TWICE PER DAY, ORAL
     Route: 048
  2. LAMIVUDINE [Suspect]
     Indication: ANTIVIRAL PROPHYLAXIS
     Dosage: 6 MG TWICE PER DAY, ORAL
     Route: 048
  3. COMBIVIR [Suspect]
     Indication: ANTIVIRAL PROPHYLAXIS
     Dosage: 1 TABLET TWICE PER DAY; TRANSPLACENTAL
     Route: 064
  4. NEVIRAPINE [Suspect]
     Indication: ANTIVIRAL PROPHYLAXIS
     Dosage: 2 MG/KG, SINGLE DOSE, ORAL
     Route: 048
  5. NEVIRAPINE [Suspect]
     Indication: ANTIVIRAL PROPHYLAXIS
     Dosage: 200 MG, SINGLE DOSE, TRANSPLACENTAL
     Route: 064

REACTIONS (2)
  - MATERNAL DRUGS AFFECTING FOETUS [None]
  - SUDDEN INFANT DEATH SYNDROME [None]
